FAERS Safety Report 12707525 (Version 2)
Quarter: 2016Q4

REPORT INFORMATION
  Report Type: Spontaneous
  Country: RO (occurrence: RO)
  Receive Date: 20160901
  Receipt Date: 20161017
  Transmission Date: 20170207
  Serious: Yes (Hospitalization)
  Sender: FDA-Public Use
  Company Number: RO-TEVA-686684ISR

PATIENT
  Age: 48 Year
  Sex: Female

DRUGS (7)
  1. DEXAMETHASONE. [Concomitant]
     Active Substance: DEXAMETHASONE
     Indication: PREMEDICATION
     Dates: start: 20160816, end: 20160816
  2. CLARITINE [Concomitant]
     Active Substance: LORATADINE
     Indication: PREMEDICATION
     Route: 048
     Dates: start: 20160816, end: 20160816
  3. GRANISETRON [Concomitant]
     Active Substance: GRANISETRON
     Indication: PREMEDICATION
     Dates: start: 20160816, end: 20160816
  4. SINDAXEL 6 MG/ML CONCENTRAT PENTRU SOLUTIE PERFUZABILA [Suspect]
     Active Substance: PACLITAXEL
     Indication: CERVIX CARCINOMA
     Dosage: 220 MG
     Route: 042
     Dates: start: 20160816, end: 20160816
  5. SODIUM CHLORIDE SOLUTION 0.9% [Concomitant]
     Active Substance: SODIUM CHLORIDE
     Indication: PREMEDICATION
     Route: 042
     Dates: start: 20160816, end: 20160816
  6. ARNETIN [Concomitant]
     Indication: PREMEDICATION
     Dates: start: 20160816, end: 20160816
  7. IBUPROFEN. [Concomitant]
     Active Substance: IBUPROFEN
     Dosage: 400 MILLIGRAM DAILY;
     Dates: start: 20160815, end: 20160815

REACTIONS (5)
  - Suffocation feeling [Recovered/Resolved]
  - Off label use [Not Recovered/Not Resolved]
  - Nausea [Recovered/Resolved]
  - Erythema [Recovered/Resolved]
  - Panic reaction [Recovered/Resolved]

NARRATIVE: CASE EVENT DATE: 20160816
